FAERS Safety Report 10234828 (Version 1)
Quarter: 2014Q1

REPORT INFORMATION
  Report Type: Spontaneous
  Country: US (occurrence: None)
  Receive Date: 20140306
  Receipt Date: 20140306
  Transmission Date: 20141002
  Serious: Yes (Hospitalization)
  Sender: FDA-Public Use
  Company Number: 163-21880-13050760

PATIENT
  Age: 52 Year
  Sex: Female
  Weight: 60.3 kg

DRUGS (6)
  1. REVLIMID (LENALIDOMIDE) (25 MILLIGRAM, CAPSULES) [Suspect]
     Indication: PLASMA CELL MYELOMA
     Route: 048
     Dates: start: 20110817
  2. OXYCODONE/ACETAMINOPHEN (OXYCOCET) (UNKNOWN) [Concomitant]
  3. AMOX TR-K CLV (TABLETS) [Concomitant]
  4. DEXAMETHASONE (TABLETS) [Concomitant]
  5. ASPIRIN ADULT (ACETYLSALICYLIC ACID) (CHEWABLE TABLET) [Concomitant]
  6. VELCADE (BORTEZOMIB) (UNKNOWN) [Concomitant]

REACTIONS (3)
  - Pulmonary embolism [None]
  - Thrombosis [None]
  - Drug dose omission [None]
